FAERS Safety Report 4433077-8 (Version None)
Quarter: 2004Q3

REPORT INFORMATION
  Report Type: 
  Country: None (occurrence: None)
  Receive Date: 20040823
  Receipt Date: 20040815
  Transmission Date: 20050211
  Serious: Yes (Other)
  Sender: FDA-Public Use
  Company Number: US013616

PATIENT
  Sex: Female

DRUGS (4)
  1. PROVIGIL [Suspect]
     Indication: SOMNOLENCE
     Dosage: 400 MG ORAL
     Route: 048
     Dates: start: 20040802
  2. PROZAC [Concomitant]
  3. LAMICTAL [Concomitant]
  4. ZOMIG [Concomitant]

REACTIONS (4)
  - BLOOD CALCIUM DECREASED [None]
  - BLOOD POTASSIUM DECREASED [None]
  - BLOOD SODIUM DECREASED [None]
  - GRAND MAL CONVULSION [None]
